FAERS Safety Report 6369854-6 (Version None)
Quarter: 2009Q3

REPORT INFORMATION
  Report Type: 
  Country: None (occurrence: None)
  Receive Date: 20090923
  Receipt Date: 20070815
  Transmission Date: 20100115
  Serious: Yes (Other)
  Sender: FDA-Public Use
  Company Number: US-ASTRAZENECA-2006UW10876

PATIENT
  Age: 40 Year
  Sex: Female
  Weight: 89.8 kg

DRUGS (26)
  1. SEROQUEL [Suspect]
     Indication: DEPRESSION
     Route: 048
     Dates: start: 20020101, end: 20030101
  2. SEROQUEL [Suspect]
     Indication: SLEEP DISORDER
     Route: 048
     Dates: start: 20020101, end: 20030101
  3. SEROQUEL [Suspect]
     Dosage: 25 MG-300 MG
     Route: 048
     Dates: start: 20030819
  4. SEROQUEL [Suspect]
     Dosage: 25 MG-300 MG
     Route: 048
     Dates: start: 20030819
  5. THORAZINE [Concomitant]
  6. OLANZAPINE [Concomitant]
  7. LEXAPRO [Concomitant]
  8. DEXATRIM [Concomitant]
  9. PREDNISONE TAB [Concomitant]
     Dosage: 5 MG-40 MG
  10. GLUCOPHAGE [Concomitant]
  11. HUMALOG [Concomitant]
     Dosage: 38 UNITS, THREE TIMES A DAY
  12. ZOCOR [Concomitant]
     Route: 048
  13. ULTRAM [Concomitant]
     Dosage: 50 TO 100 MG ON Q.6.H.P.R.N. BASIS ,100 MG EVERY 4 HOUR
  14. TYLENOL (CAPLET) [Concomitant]
     Indication: PAIN
  15. IBUPROFEN [Concomitant]
     Indication: PAIN
     Dosage: 600 TO 800 MG TABLET AS NECESSARY
     Route: 048
  16. IBUPROFEN [Concomitant]
     Indication: DISCOMFORT
     Dosage: 600 TO 800 MG TABLET AS NECESSARY
     Route: 048
  17. HYDROCHLOROTHIAZIDE [Concomitant]
  18. FLOVENT [Concomitant]
  19. ALLEGRA [Concomitant]
     Indication: MULTIPLE ALLERGIES
  20. AVANDIA [Concomitant]
     Dosage: 4 MG ONCE DAILY, 4 MG TWICE DAILY
  21. RANITIDINE [Concomitant]
     Dosage: 150 MG TABLET AS NEEDED
  22. TRAZODONE [Concomitant]
  23. LANTUS [Concomitant]
     Dosage: 60 UNITS, ONCE DAILY
  24. NIASPAN [Concomitant]
  25. TUSSIONEX [Concomitant]
     Route: 048
  26. FLUCONAZOLE [Concomitant]

REACTIONS (2)
  - DIABETIC COMA [None]
  - HYPERGLYCAEMIA [None]
